FAERS Safety Report 8439795-9 (Version None)
Quarter: 2012Q2

REPORT INFORMATION
  Report Type: 
  Country: None (occurrence: None)
  Receive Date: 20120615
  Receipt Date: 20120607
  Transmission Date: 20120825
  Serious: Yes (Hospitalization)
  Sender: FDA-Public Use
  Company Number: FR-BIOMARINP-002653

PATIENT
  Sex: Female
  Weight: 23 kg

DRUGS (2)
  1. OMEPRAZOLE [Concomitant]
  2. KUVAN [Suspect]
     Indication: SMALL FOR DATES BABY
     Dates: start: 20070101

REACTIONS (1)
  - LARYNGITIS [None]
